FAERS Safety Report 5718998-8 (Version None)
Quarter: 2008Q2

REPORT INFORMATION
  Report Type: 
  Country: None (occurrence: None)
  Receive Date: 20080425
  Receipt Date: 20080415
  Transmission Date: 20081010
  Serious: Yes (Other)
  Sender: FDA-Public Use
  Company Number: PHHY2008ID04879

PATIENT
  Age: 50 Year
  Sex: Male

DRUGS (1)
  1. RASILEZ [Suspect]
     Indication: HYPERTENSION
     Dosage: 150 MG/DAY
     Route: 048
     Dates: start: 20080402

REACTIONS (11)
  - ANGIOEDEMA [None]
  - EYELID OEDEMA [None]
  - HYPERSENSITIVITY [None]
  - INSOMNIA [None]
  - LIP OEDEMA [None]
  - PALPITATIONS [None]
  - PERIORBITAL OEDEMA [None]
  - PRURITUS [None]
  - RASH GENERALISED [None]
  - TACHYCARDIA [None]
  - URTICARIA [None]
